FAERS Safety Report 5332366-2 (Version None)
Quarter: 2007Q2

REPORT INFORMATION
  Report Type: 
  Country: None (occurrence: None)
  Receive Date: 20070523
  Receipt Date: 20070518
  Transmission Date: 20071010
  Serious: Yes (Other)
  Sender: FDA-Public Use
  Company Number: A0652459A

PATIENT
  Age: 45 Year
  Sex: Male

DRUGS (1)
  1. AROPAX [Suspect]
     Indication: PANIC ATTACK
     Dosage: 20MG PER DAY
     Route: 048
     Dates: start: 20070319

REACTIONS (3)
  - CHOLURIA [None]
  - HEPATITIS [None]
  - PYREXIA [None]
